FAERS Safety Report 20128392 (Version 1)
Quarter: 2021Q4

REPORT INFORMATION
  Report Type: Report from Study
  Country: IN (occurrence: IN)
  Receive Date: 20211130
  Receipt Date: 20211130
  Transmission Date: 20220303
  Serious: Yes (Death, Other)
  Sender: FDA-Public Use
  Company Number: IN-BRISTOL-MYERS SQUIBB COMPANY-BMS-2021-127981

PATIENT
  Age: 63 Year
  Sex: Male
  Weight: 66 kg

DRUGS (1)
  1. NIVOLUMAB [Suspect]
     Active Substance: NIVOLUMAB
     Indication: Renal cell carcinoma
     Dosage: 198 MILLIGRAM, Q2WK
     Route: 042
     Dates: start: 20211001, end: 20211126

REACTIONS (1)
  - Death [Fatal]

NARRATIVE: CASE EVENT DATE: 20211126
